FAERS Safety Report 5156358-1 (Version None)
Quarter: 2006Q4

REPORT INFORMATION
  Report Type: 
  Country: None (occurrence: None)
  Receive Date: 20061122
  Receipt Date: 20061117
  Transmission Date: 20070319
  Serious: Yes (Hospitalization)
  Sender: FDA-Public Use
  Company Number: GB-SANOFI-SYNTHELABO-F01200602353

PATIENT
  Sex: Female
  Weight: 72 kg

DRUGS (7)
  1. CHLORPHENIRAMINE MALEATE [Concomitant]
     Route: 042
     Dates: start: 20060905, end: 20060905
  2. RANITIDINE [Concomitant]
     Route: 048
     Dates: start: 20060905, end: 20060905
  3. ACETAMINOPHEN [Concomitant]
     Route: 048
     Dates: start: 20060905, end: 20060905
  4. DEXAMETHASONE TAB [Concomitant]
     Route: 048
     Dates: start: 20060905, end: 20060907
  5. CETUXIMAB [Suspect]
     Route: 041
     Dates: start: 20060905, end: 20060905
  6. CAPECITABINE [Suspect]
     Dosage: BID DAYS 1-14 1800 MG
     Route: 048
     Dates: start: 20060824, end: 20060906
  7. OXALIPLATIN [Suspect]
     Indication: COLORECTAL CANCER METASTATIC
     Route: 041
     Dates: start: 20060824, end: 20060824

REACTIONS (1)
  - SYNCOPE [None]
